FAERS Safety Report 9764631 (Version 1)
Quarter: 2013Q4

REPORT INFORMATION
  Report Type: Spontaneous
  Country: US (occurrence: None)
  Receive Date: 20131213
  Receipt Date: 20131213
  Transmission Date: 20140711
  Serious: Yes (Other)
  Sender: FDA-Public Use
  Company Number: 2013SA025174

PATIENT
  Age: 55 Year
  Sex: Female
  Weight: 83 kg

DRUGS (4)
  1. CAPSAICIN [Suspect]
     Indication: NECK PAIN
     Route: 061
  2. NORVASC [Concomitant]
  3. NAMENDA [Concomitant]
  4. SEROQUEL [Concomitant]

REACTIONS (6)
  - Application site burn [None]
  - Somnolence [None]
  - Impaired driving ability [None]
  - Impaired work ability [None]
  - Burns first degree [None]
  - Burns second degree [None]
